FAERS Safety Report 8257809-6 (Version None)
Quarter: 2012Q2

REPORT INFORMATION
  Report Type: 
  Country: None (occurrence: None)
  Receive Date: 20120404
  Receipt Date: 20120326
  Transmission Date: 20120825
  Serious: No
  Sender: FDA-Public Use
  Company Number: US-BIOGENIDEC-2012BI011000

PATIENT
  Sex: Female

DRUGS (8)
  1. MIGRANAL [Concomitant]
     Indication: MIGRAINE
  2. NORTRIPTYLINE HCL [Concomitant]
     Indication: PARAESTHESIA
  3. VALIUM [Concomitant]
     Indication: ANXIETY
  4. BUSPIRONE HCL [Concomitant]
     Indication: ANXIETY
  5. TYSABRI [Suspect]
     Indication: MULTIPLE SCLEROSIS
     Route: 042
     Dates: start: 20111117, end: 20111117
  6. TOPAMAX [Concomitant]
     Indication: MIGRAINE
  7. PROVIGIL [Concomitant]
     Indication: FATIGUE
  8. GABAPENTIN [Concomitant]
     Indication: MUSCLE SPASTICITY

REACTIONS (4)
  - MULTIPLE SCLEROSIS RELAPSE [None]
  - DYSPHAGIA [None]
  - ABDOMINAL DISCOMFORT [None]
  - DEPRESSION [None]
